FAERS Safety Report 17326899 (Version 2)
Quarter: 2020Q4

REPORT INFORMATION
  Report Type: Report from Study
  Country: CA (occurrence: CA)
  Receive Date: 20200127
  Receipt Date: 20201216
  Transmission Date: 20210113
  Serious: Yes (Life-Threatening, Other)
  Sender: FDA-Public Use
  Company Number: CA-PFM-2020-00705

PATIENT

DRUGS (6)
  1. OMEPRAZOLE MAGNESIUM. [Concomitant]
     Active Substance: OMEPRAZOLE MAGNESIUM
     Indication: PRODUCT USED FOR UNKNOWN INDICATION
     Dosage: UNK
     Route: 065
  2. PROPRANOLOL HYDROCHLORIDE. [Suspect]
     Active Substance: PROPRANOLOL HYDROCHLORIDE
     Indication: PRODUCT USED FOR UNKNOWN INDICATION
     Dosage: UNK
     Route: 065
  3. CYCLOBENZAPRINE HYDROCHLORIDE. [Concomitant]
     Active Substance: CYCLOBENZAPRINE HYDROCHLORIDE
     Indication: PRODUCT USED FOR UNKNOWN INDICATION
     Dosage: UNK
     Route: 065
  4. SANDOSTATIN [Suspect]
     Active Substance: OCTREOTIDE ACETATE
     Indication: DUMPING SYNDROME
     Dosage: 20 MG, UNK
     Route: 030
  5. ACETYLSALICYLIC ACID W/BUTALBITAL/CAFFEINE/CODEINE PHOSPHATE [Concomitant]
     Indication: PRODUCT USED FOR UNKNOWN INDICATION
     Dosage: UNK
     Route: 065
  6. SYNTHROID [Concomitant]
     Active Substance: LEVOTHYROXINE SODIUM
     Indication: PRODUCT USED FOR UNKNOWN INDICATION
     Dosage: UNK
     Route: 065

REACTIONS (21)
  - Asthenia [Recovered/Resolved]
  - Hypoglycaemia [Recovered/Resolved]
  - Stress [Recovered/Resolved]
  - Haemorrhage [Recovered/Resolved]
  - Malaise [Recovered/Resolved]
  - Product use in unapproved indication [Unknown]
  - Product administered to patient of inappropriate age [Unknown]
  - Burning sensation [Recovered/Resolved]
  - Gait inability [Recovered/Resolved]
  - Haemorrhoids [Recovered/Resolved]
  - Musculoskeletal stiffness [Recovered/Resolved]
  - Body temperature decreased [Recovered/Resolved]
  - Cystitis [Recovered/Resolved]
  - Joint swelling [Recovered/Resolved]
  - Off label use [Unknown]
  - Arthritis [Recovered/Resolved]
  - Tenderness [Recovered/Resolved]
  - Inappropriate schedule of product administration [Unknown]
  - Blood pressure increased [Recovered/Resolved]
  - Skin atrophy [Recovered/Resolved]
  - Urinary tract infection [Recovered/Resolved]
